FAERS Safety Report 9573611 (Version 1)
Quarter: 2013Q4

REPORT INFORMATION
  Report Type: Spontaneous
  Country: US (occurrence: US)
  Receive Date: 20131001
  Receipt Date: 20131001
  Transmission Date: 20140711
  Serious: No
  Sender: FDA-Public Use
  Company Number: US-PFIZER INC-2013278615

PATIENT
  Age: 82 Year
  Sex: Male
  Weight: 99.77 kg

DRUGS (1)
  1. ADVIL [Suspect]
     Dosage: UNK, ONCE A DAY
     Route: 048

REACTIONS (2)
  - Musculoskeletal stiffness [Not Recovered/Not Resolved]
  - Therapeutic response unexpected [Unknown]
